FAERS Safety Report 9999278 (Version 2)
Quarter: 2014Q2

REPORT INFORMATION
  Report Type: Spontaneous
  Country: JP (occurrence: JP)
  Receive Date: 20140312
  Receipt Date: 20140402
  Transmission Date: 20141212
  Serious: Yes (Death, Life-Threatening, Hospitalization)
  Sender: FDA-Public Use
  Company Number: JP-ASTELLAS-2014JP002048

PATIENT
  Age: 59 Year
  Sex: Female

DRUGS (11)
  1. PROGRAF [Suspect]
     Indication: RHEUMATOID VASCULITIS
     Dosage: 2 MG, UID/QD
     Route: 048
     Dates: start: 20080327
  2. LIPITOR [Suspect]
     Indication: HYPERLIPIDAEMIA
     Dosage: 10 MG, UID/QD
     Route: 048
     Dates: start: 20070321
  3. RHEUMATREX                         /00113801/ [Suspect]
     Indication: RHEUMATOID VASCULITIS
     Dosage: UNK
     Route: 048
     Dates: start: 20110118
  4. RHEUMATREX                         /00113801/ [Suspect]
     Route: 048
  5. TAKEPRON [Suspect]
     Indication: PROPHYLAXIS
     Dosage: 15 MG, UID/QD
     Route: 048
     Dates: start: 20101028
  6. VOLTAREN                           /00372302/ [Suspect]
     Indication: RHEUMATOID VASCULITIS
     Dosage: 75 MG, BID
     Route: 048
     Dates: start: 20110510
  7. ACTEMRA [Suspect]
     Indication: RHEUMATOID VASCULITIS
     Dosage: 300 MG, UNKNOWN/D
     Route: 041
     Dates: start: 20110519
  8. LYRICA [Concomitant]
     Indication: RHEUMATOID VASCULITIS
     Dosage: 50 MG, BID
     Route: 048
     Dates: start: 20120625
  9. DEPAS [Concomitant]
     Indication: INSOMNIA
     Dosage: 0.5 MG, UID/QD
     Route: 048
     Dates: start: 200512
  10. PREDNISOLONE [Concomitant]
     Indication: RHEUMATOID VASCULITIS
     Dosage: 1 MG, UID/QD
     Route: 048
     Dates: start: 200512
  11. GRANULOCYTE COLONY-STIMULATING FACTOR NOS [Concomitant]
     Indication: PANCYTOPENIA
     Dosage: UNK
     Route: 065
     Dates: start: 2013

REACTIONS (5)
  - Intentional product misuse [Unknown]
  - Intestinal obstruction [Fatal]
  - Small intestinal ulcer haemorrhage [Not Recovered/Not Resolved]
  - Intestinal haemorrhage [Fatal]
  - Pancytopenia [Recovered/Resolved]
